FAERS Safety Report 10167015 (Version 1)
Quarter: 2014Q2

REPORT INFORMATION
  Report Type: Spontaneous
  Country: US (occurrence: None)
  Receive Date: 20140509
  Receipt Date: 20140509
  Transmission Date: 20141212
  Serious: No
  Sender: FDA-Public Use
  Company Number: None

PATIENT
  Age: 83 Year
  Sex: Female
  Weight: 68.2 kg

DRUGS (2)
  1. RANEXA 20MG GILEAD SCIENCES [Suspect]
     Indication: ANGINA PECTORIS
     Route: 048
     Dates: start: 201306, end: 201307
  2. WARFARIN 2.5MG AND 1MG [Suspect]
     Indication: ATRIAL FIBRILLATION
     Dosage: 2.5MG X 5 DAYS ?3.5MG X 2 DAYS A?DAILY ?PO??PAST 5 YRS
     Route: 048

REACTIONS (2)
  - International normalised ratio increased [None]
  - Drug interaction [None]
